FAERS Safety Report 18021138 (Version 1)
Quarter: 2020Q3

REPORT INFORMATION
  Report Type: Spontaneous
  Country: DE (occurrence: DE)
  Receive Date: 20200714
  Receipt Date: 20200714
  Transmission Date: 20201103
  Serious: Yes (Other)
  Sender: FDA-Public Use
  Company Number: NVSC2020DE190908

PATIENT
  Age: 8 Year
  Sex: Male
  Weight: 28 kg

DRUGS (3)
  1. CETIRIZIN SANDOZ [Suspect]
     Active Substance: CETIRIZINE HYDROCHLORIDE
     Indication: PRURITUS
     Dosage: 0,5 TABL. ZUR NACHT
     Route: 048
     Dates: start: 20200529, end: 20200531
  2. CETIRIZIN SANDOZ [Suspect]
     Active Substance: CETIRIZINE HYDROCHLORIDE
     Indication: NEURODERMATITIS
  3. CETIRIZIN SANDOZ [Suspect]
     Active Substance: CETIRIZINE HYDROCHLORIDE
     Indication: SEASONAL ALLERGY

REACTIONS (11)
  - Scratch [Unknown]
  - Restlessness [Recovering/Resolving]
  - Adverse reaction [Recovering/Resolving]
  - Somnolence [Unknown]
  - Disturbance in attention [Unknown]
  - Panic reaction [Recovering/Resolving]
  - Hallucination, visual [Recovering/Resolving]
  - Poor quality sleep [Recovering/Resolving]
  - Mood altered [Unknown]
  - Skin haemorrhage [Unknown]
  - Pruritus [Unknown]

NARRATIVE: CASE EVENT DATE: 202005
